FAERS Safety Report 8516246-7 (Version None)
Quarter: 2012Q3

REPORT INFORMATION
  Report Type: 
  Country: None (occurrence: None)
  Receive Date: 20120717
  Receipt Date: 20120710
  Transmission Date: 20120928
  Serious: No
  Sender: FDA-Public Use
  Company Number: US-009507513-1207USA002613

PATIENT

DRUGS (3)
  1. ALPHAGAN [Concomitant]
  2. COSOPT [Suspect]
     Route: 047
  3. XALATAN [Concomitant]

REACTIONS (1)
  - OCULAR HYPERAEMIA [None]
